FAERS Safety Report 7851671-9 (Version None)
Quarter: 2011Q3

REPORT INFORMATION
  Report Type: 
  Country: None (occurrence: None)
  Receive Date: 20110909
  Receipt Date: 20110728
  Transmission Date: 20111222
  Serious: Yes (Other)
  Sender: FDA-Public Use
  Company Number: 2011SP035527

PATIENT
  Age: 55 Year
  Sex: Female

DRUGS (11)
  1. FOLIC ACID [Concomitant]
  2. VICTRELIS [Suspect]
     Indication: PRODUCT USED FOR UNKNOWN INDICATION
     Dosage: 800 MG;TID;PO
     Route: 048
     Dates: start: 20110704
  3. RIBAVIRIN [Suspect]
     Indication: HEPATITIS C
     Dosage: PO
     Route: 048
     Dates: start: 20110603
  4. RIBAVIRIN [Suspect]
     Indication: HEPATIC CIRRHOSIS
     Dosage: PO
     Route: 048
     Dates: start: 20110603
  5. CALCIUM WITH VITAMIN D [Concomitant]
  6. LEXAPRO [Concomitant]
  7. IMITREX [Concomitant]
  8. ORACEA [Concomitant]
  9. IRON [Concomitant]
  10. VITAMIN B COMPLEX CAP [Concomitant]
  11. PEG-INTRON [Suspect]
     Indication: PRODUCT USED FOR UNKNOWN INDICATION
     Dates: start: 20110603

REACTIONS (9)
  - WEIGHT DECREASED [None]
  - DIARRHOEA [None]
  - ASTHENIA [None]
  - MYALGIA [None]
  - INSOMNIA [None]
  - ODYNOPHAGIA [None]
  - NEUTROPENIA [None]
  - FATIGUE [None]
  - INFLUENZA LIKE ILLNESS [None]
